FAERS Safety Report 12362948 (Version 1)
Quarter: 2016Q2

REPORT INFORMATION
  Report Type: Spontaneous
  Country: US (occurrence: US)
  Receive Date: 20160512
  Receipt Date: 20160512
  Transmission Date: 20160815
  Serious: No
  Sender: FDA-Public Use
  Company Number: US-UCBSA-2014012123

PATIENT
  Age: 53 Year
  Sex: Female
  Weight: 141.5 kg

DRUGS (1)
  1. CIMZIA [Suspect]
     Active Substance: CERTOLIZUMAB PEGOL
     Indication: RHEUMATOID ARTHRITIS
     Dosage: 400 MG, EV 2 WEEKS(QOW)
     Route: 058
     Dates: start: 20140911, end: 20141118

REACTIONS (6)
  - Urinary tract infection [Unknown]
  - Drug ineffective [Unknown]
  - Faeces discoloured [Not Recovered/Not Resolved]
  - Nausea [Recovered/Resolved]
  - Neck mass [Unknown]
  - Pharyngeal mass [Unknown]

NARRATIVE: CASE EVENT DATE: 2014
